FAERS Safety Report 13988560 (Version 6)
Quarter: 2020Q2

REPORT INFORMATION
  Report Type: Report from Study
  Country: US (occurrence: US)
  Receive Date: 20170919
  Receipt Date: 20200601
  Transmission Date: 20200713
  Serious: Yes (Hospitalization)
  Sender: FDA-Public Use
  Company Number: US-ACTELION-A-US2017-148673

PATIENT
  Sex: Female
  Weight: 66.67 kg

DRUGS (8)
  1. VELETRI [Suspect]
     Active Substance: EPOPROSTENOL
     Indication: PULMONARY ARTERIAL HYPERTENSION
     Dosage: 13.4 NG/KG, PER MIN
     Route: 042
  2. VELETRI [Suspect]
     Active Substance: EPOPROSTENOL
     Dosage: 3437 NG/KG, PER MIN
     Route: 042
  3. WARFARIN [Concomitant]
     Active Substance: WARFARIN
  4. VELETRI [Suspect]
     Active Substance: EPOPROSTENOL
     Dosage: 12 NG/KG, PER MIN
     Route: 042
  5. UPTRAVI [Suspect]
     Active Substance: SELEXIPAG
     Indication: PULMONARY ARTERIAL HYPERTENSION
     Dosage: 1600 MCG, BID
     Route: 048
  6. VELETRI [Suspect]
     Active Substance: EPOPROSTENOL
     Dosage: 59 NG/KG, PER MIN
     Route: 042
     Dates: start: 20101026
  7. UPTRAVI [Suspect]
     Active Substance: SELEXIPAG
     Dosage: 400 MCG, BID
     Route: 048
  8. VELETRI [Suspect]
     Active Substance: EPOPROSTENOL
     Dosage: 13 NG/KG, PER MIN
     Route: 042

REACTIONS (8)
  - Headache [Not Recovered/Not Resolved]
  - Thrombosis in device [Unknown]
  - Catheter management [Unknown]
  - Flushing [Unknown]
  - Therapy change [Unknown]
  - Furuncle [Unknown]
  - Erythema [Unknown]
  - Unevaluable event [Unknown]
